FAERS Safety Report 20086161 (Version 1)
Quarter: 2021Q4

REPORT INFORMATION
  Report Type: Spontaneous
  Country: US (occurrence: None)
  Receive Date: 20211118
  Receipt Date: 20211118
  Transmission Date: 20220304
  Serious: Yes (Hospitalization)
  Sender: FDA-Public Use
  Company Number: None

PATIENT
  Sex: Male
  Weight: 112 kg

DRUGS (3)
  1. CYTARABINE [Suspect]
     Active Substance: CYTARABINE
  2. DEXRAZOXANE (ZINECARD) [Concomitant]
  3. MITODANTRONE HYDROCHLORIDE [Concomitant]

REACTIONS (9)
  - Pyrexia [None]
  - Chills [None]
  - Hypotension [None]
  - Tachycardia [None]
  - Respiratory rate increased [None]
  - Chest discomfort [None]
  - Septic shock [None]
  - Immunodeficiency [None]
  - Bacterial infection [None]

NARRATIVE: CASE EVENT DATE: 20211018
